FAERS Safety Report 6772564-4 (Version None)
Quarter: 2010Q2

REPORT INFORMATION
  Report Type: 
  Country: None (occurrence: None)
  Receive Date: 20100616
  Receipt Date: 20090716
  Transmission Date: 20101027
  Serious: No
  Sender: FDA-Public Use
  Company Number: US-ASTRAZENECA-2009UW07178

PATIENT
  Age: 75 Year
  Sex: Female
  Weight: 72.6 kg

DRUGS (6)
  1. PULMICORT FLEXHALER [Suspect]
     Dosage: DIFFERENT FREQUENCY AND DIFFERENT DOSING
     Route: 055
     Dates: start: 20090101
  2. PULMICORT FLEXHALER [Suspect]
     Route: 055
     Dates: start: 20090101
  3. LUMIGAN [Concomitant]
     Indication: GLAUCOMA
  4. ALPHAGAN [Concomitant]
     Indication: GLAUCOMA
  5. PROCARDIA XL [Concomitant]
     Indication: HYPERTENSION
  6. VITAMINS [Concomitant]

REACTIONS (3)
  - ACCIDENTAL EXPOSURE [None]
  - BLOOD GLUCOSE INCREASED [None]
  - WEIGHT INCREASED [None]
